FAERS Safety Report 4898260-6 (Version None)
Quarter: 2006Q1

REPORT INFORMATION
  Report Type: 
  Country: None (occurrence: None)
  Receive Date: 20060201
  Receipt Date: 20060125
  Transmission Date: 20060701
  Serious: Yes (Hospitalization)
  Sender: FDA-Public Use
  Company Number: GB-MERCK-0601GBR00135

PATIENT
  Age: 70 Year
  Sex: Male

DRUGS (11)
  1. ZOCOR [Suspect]
     Route: 065
  2. GALANTAMINE HYDROBROMIDE [Suspect]
     Route: 065
     Dates: start: 20040401
  3. SULFASALAZINE [Suspect]
     Route: 065
  4. QUININE SULFATE [Suspect]
     Route: 065
  5. ACETAMINOPHEN AND DIHYDROCODEINE BITARTRATE [Suspect]
     Route: 065
  6. NIFEDIPINE [Suspect]
     Route: 065
  7. CELECOXIB [Suspect]
     Route: 065
  8. TAMSULOSIN HYDROCHLORIDE [Concomitant]
     Route: 065
  9. ESOMEPRAZOLE [Concomitant]
     Route: 065
  10. ASPIRIN [Concomitant]
     Route: 065
  11. ATENOLOL [Concomitant]
     Route: 065

REACTIONS (3)
  - CHILLS [None]
  - JAUNDICE [None]
  - PYREXIA [None]
